FAERS Safety Report 5014364-1 (Version None)
Quarter: 2006Q2

REPORT INFORMATION
  Report Type: 
  Country: None (occurrence: None)
  Receive Date: 20060525
  Receipt Date: 20060516
  Transmission Date: 20061013
  Serious: Yes (Other)
  Sender: FDA-Public Use
  Company Number: 2006065981

PATIENT

DRUGS (3)
  1. LYRICA [Suspect]
     Dosage: 600 MG (300 MG, 2 IN 1 D), ORAL
     Route: 048
  2. . [Concomitant]
  3. . [Concomitant]

REACTIONS (1)
  - DEPRESSED LEVEL OF CONSCIOUSNESS [None]
